FAERS Safety Report 17325215 (Version 2)
Quarter: 2020Q1

REPORT INFORMATION
  Report Type: Spontaneous
  Country: US (occurrence: US)
  Receive Date: 20200127
  Receipt Date: 20200311
  Transmission Date: 20200409
  Serious: Yes (Other)
  Sender: FDA-Public Use
  Company Number: US-PFIZER INC-2020031985

PATIENT
  Age: 56 Year
  Sex: Female

DRUGS (1)
  1. ESTRING [Suspect]
     Active Substance: ESTRADIOL
     Indication: URINARY TRACT INFECTION
     Dosage: UNK

REACTIONS (8)
  - Fatigue [Unknown]
  - Drug effective for unapproved indication [Unknown]
  - Malaise [Unknown]
  - Off label use [Unknown]
  - Gastric disorder [Unknown]
  - Liver transplant rejection [Unknown]
  - Product use in unapproved indication [Unknown]
  - Immunodeficiency [Unknown]
